FAERS Safety Report 15460400 (Version 2)
Quarter: 2022Q3

REPORT INFORMATION
  Report Type: Report from Study
  Country: CA (occurrence: CA)
  Receive Date: 20181003
  Receipt Date: 20220819
  Transmission Date: 20221027
  Serious: Yes (Hospitalization, Other)
  Sender: FDA-Public Use
  Company Number: CA-JNJFOC-20180840986

PATIENT
  Age: 45 Year
  Sex: Male
  Weight: 80.45 kg

DRUGS (3)
  1. STELARA [Suspect]
     Active Substance: USTEKINUMAB
     Indication: Crohn^s disease
     Dosage: STRENGTH = 90 MG
     Route: 042
     Dates: start: 20170411
  2. STELARA [Suspect]
     Active Substance: USTEKINUMAB
     Route: 058
     Dates: start: 20170606
  3. STELARA [Suspect]
     Active Substance: USTEKINUMAB
     Dosage: REQUEST TO IV RELOAD 390MG THEN RESUME 90MG Q8
     Route: 042
     Dates: start: 20220811

REACTIONS (6)
  - Internal haemorrhage [Unknown]
  - Intestinal resection [Unknown]
  - Cholecystectomy [Unknown]
  - Ileus [Unknown]
  - Post procedural complication [Unknown]
  - Abdominal pain [Unknown]

NARRATIVE: CASE EVENT DATE: 20180901
